FAERS Safety Report 6644502-6 (Version None)
Quarter: 2010Q1

REPORT INFORMATION
  Report Type: 
  Country: None (occurrence: None)
  Receive Date: 20100319
  Receipt Date: 20100319
  Transmission Date: 20100710
  Serious: Yes (Hospitalization, Disabling, Other)
  Sender: FDA-Public Use
  Company Number: None

PATIENT
  Age: 32 Year
  Sex: Female
  Weight: 63.5036 kg

DRUGS (3)
  1. TRAMADOL HCL [Suspect]
     Indication: PAIN
     Dosage: 50MG TWICE DAILY BY MOUTH
     Route: 048
     Dates: start: 20080802, end: 20091224
  2. BACLOFEN [Suspect]
     Indication: MUSCLE RELAXANT THERAPY
     Dosage: 10MG THREE TIMES DAILY BY MOUTH
     Route: 048
     Dates: start: 20090123, end: 20091224
  3. HYDROCODONE [Suspect]

REACTIONS (12)
  - CHEST PAIN [None]
  - EAR DISCOMFORT [None]
  - EAR DISORDER [None]
  - EAR PAIN [None]
  - EAR PRURITUS [None]
  - MUSCULOSKELETAL CHEST PAIN [None]
  - PAIN IN JAW [None]
  - SKIN BURNING SENSATION [None]
  - SWELLING FACE [None]
  - SYNCOPE [None]
  - TINNITUS [None]
  - TOOTHACHE [None]
